FAERS Safety Report 8419850-X (Version None)
Quarter: 2012Q2

REPORT INFORMATION
  Report Type: 
  Country: None (occurrence: None)
  Receive Date: 20120607
  Receipt Date: 20120604
  Transmission Date: 20120825
  Serious: Yes (Death, Hospitalization, Other)
  Sender: FDA-Public Use
  Company Number: PHHY2011DK64985

PATIENT
  Sex: Female

DRUGS (1)
  1. GESTODENE AND ETHINYL ESTRADIOL [Suspect]
     Indication: CONTRACEPTION
     Route: 048
     Dates: start: 20110125

REACTIONS (14)
  - PULMONARY EMBOLISM [None]
  - MALAISE [None]
  - VOMITING [None]
  - OROPHARYNGEAL PAIN [None]
  - NAUSEA [None]
  - DYSPNOEA [None]
  - CHEST PAIN [None]
  - METABOLIC ACIDOSIS [None]
  - CIRCULATORY COLLAPSE [None]
  - HYPOTENSION [None]
  - CARDIAC ARREST [None]
  - PAIN IN EXTREMITY [None]
  - RESPIRATORY FAILURE [None]
  - BACK PAIN [None]
